FAERS Safety Report 6590047-1 (Version None)
Quarter: 2010Q1

REPORT INFORMATION
  Report Type: 
  Country: None (occurrence: None)
  Receive Date: 20100219
  Receipt Date: 20100211
  Transmission Date: 20100710
  Serious: Yes (Other)
  Sender: FDA-Public Use
  Company Number: PHEH2009US17633

PATIENT
  Sex: Male

DRUGS (12)
  1. DIOVAN HCT [Suspect]
     Indication: BLOOD PRESSURE ABNORMAL
     Dosage: 320/25MG, UNK
     Dates: start: 20080401, end: 20091201
  2. TEKTURNA HCT [Suspect]
     Dosage: 300/25MG, UNK
  3. SIMVASTATIN [Concomitant]
  4. DOXAZOSIN MESYLATE [Concomitant]
  5. ALLOPURINOL [Concomitant]
  6. LUNESTA [Concomitant]
  7. LEVOTHYROXINE SODIUM [Concomitant]
  8. HYDROCODONE BITARTRATE [Concomitant]
  9. ASPIRIN [Concomitant]
  10. OXYCODONE HCL AND ACETAMINOPHEN [Concomitant]
     Dosage: 10MG/325MG
  11. ATENOLOL [Concomitant]
     Dosage: 100 MG, UNK
  12. MELOXICAM [Concomitant]
     Dosage: 15 MG, UNK

REACTIONS (8)
  - BURNING SENSATION [None]
  - HYPERSENSITIVITY [None]
  - INCORRECT DOSE ADMINISTERED [None]
  - LIP PAIN [None]
  - LIP SWELLING [None]
  - PARAESTHESIA [None]
  - PARAESTHESIA ORAL [None]
  - PRURITUS [None]
